FAERS Safety Report 5853975-8 (Version None)
Quarter: 2008Q3

REPORT INFORMATION
  Report Type: 
  Country: None (occurrence: None)
  Receive Date: 20080822
  Receipt Date: 20080814
  Transmission Date: 20090109
  Serious: Yes (Other)
  Sender: FDA-Public Use
  Company Number: CH-ASTRAZENECA-2008PK01827

PATIENT
  Age: 71 Year
  Sex: Female

DRUGS (8)
  1. NEXIUM [Suspect]
     Route: 048
     Dates: start: 20080705, end: 20080708
  2. DAFALGAN [Suspect]
     Indication: PAIN
     Route: 048
     Dates: start: 20080705, end: 20080708
  3. OXAZEPAM [Concomitant]
     Route: 048
  4. ZOLPIDEM [Concomitant]
     Route: 048
     Dates: start: 20080704
  5. TRAMADOL HCL [Concomitant]
     Route: 048
     Dates: start: 20080704
  6. BECOZYM [Concomitant]
     Route: 048
  7. BENERVA [Concomitant]
     Route: 048
  8. MOVICOL [Concomitant]
     Route: 048

REACTIONS (2)
  - GAMMA-GLUTAMYLTRANSFERASE INCREASED [None]
  - LIVER FUNCTION TEST ABNORMAL [None]
